FAERS Safety Report 4421898-7 (Version None)
Quarter: 2004Q3

REPORT INFORMATION
  Report Type: 
  Country: None (occurrence: None)
  Receive Date: 20040804
  Receipt Date: 20040722
  Transmission Date: 20050211
  Serious: Yes (Other)
  Sender: FDA-Public Use
  Company Number: 2004049916

PATIENT
  Sex: Male

DRUGS (1)
  1. GEODON [Suspect]
     Indication: PSYCHOTIC DISORDER

REACTIONS (2)
  - DISEASE RECURRENCE [None]
  - NEUROLEPTIC MALIGNANT SYNDROME [None]
